FAERS Safety Report 13388473 (Version 3)
Quarter: 2017Q2

REPORT INFORMATION
  Report Type: Spontaneous
  Country: KR (occurrence: KR)
  Receive Date: 20170330
  Receipt Date: 20170425
  Transmission Date: 20170830
  Serious: Yes (Death, Hospitalization, Other)
  Sender: FDA-Public Use
  Company Number: KR-ELI_LILLY_AND_COMPANY-KR201703011784

PATIENT
  Age: 37 Year
  Sex: Male

DRUGS (1)
  1. LISPRO [Suspect]
     Active Substance: INSULIN LISPRO
     Route: 065

REACTIONS (5)
  - Generalised tonic-clonic seizure [Unknown]
  - Brain injury [Not Recovered/Not Resolved]
  - Hypoglycaemic coma [Recovered/Resolved]
  - Pneumonia [Fatal]
  - Overdose [Recovered/Resolved]
